FAERS Safety Report 5871347-7 (Version None)
Quarter: 2008Q3

REPORT INFORMATION
  Report Type: 
  Country: None (occurrence: None)
  Receive Date: 20080905
  Receipt Date: 20080826
  Transmission Date: 20090109
  Serious: Yes (Hospitalization)
  Sender: FDA-Public Use
  Company Number: US-AMGEN-US275724

PATIENT
  Sex: Female

DRUGS (7)
  1. ENBREL [Suspect]
     Indication: RHEUMATOID ARTHRITIS
     Route: 058
     Dates: start: 20021211
  2. METHOTREXATE [Suspect]
     Route: 048
     Dates: start: 20010320
  3. FORTEO [Suspect]
     Route: 058
     Dates: start: 20041101, end: 20061101
  4. FOLIC ACID [Concomitant]
     Route: 065
  5. ARICEPT [Concomitant]
     Route: 065
  6. ACETAMINOPHEN AND HYDROCODONE BITARTRATE [Concomitant]
     Route: 065
  7. ASPIRIN [Concomitant]
     Route: 065

REACTIONS (4)
  - BRONCHOSTENOSIS [None]
  - CARDIAC FAILURE CONGESTIVE [None]
  - INTERSTITIAL LUNG DISEASE [None]
  - PNEUMONIA [None]
